FAERS Safety Report 5366044-0 (Version None)
Quarter: 2007Q2

REPORT INFORMATION
  Report Type: 
  Country: None (occurrence: None)
  Receive Date: 20070605
  Receipt Date: 20060306
  Transmission Date: 20071010
  Serious: Yes (Death)
  Sender: FDA-Public Use
  Company Number: 06H-163-0306211-00

PATIENT
  Age: 2 Year
  Sex: Female

DRUGS (3)
  1. ENDRATE [Suspect]
     Dosage: ONCE, INTRAVENOUS
     Route: 042
     Dates: start: 20050301, end: 20050301
  2. SUCCIMER       (SUCCIMER) [Concomitant]
  3. CAEDTA (EDETATE DISODIUM) [Concomitant]

REACTIONS (3)
  - HYPOCALCAEMIA [None]
  - MEDICATION ERROR [None]
  - WRONG DRUG ADMINISTERED [None]
